FAERS Safety Report 6803922-7 (Version None)
Quarter: 2010Q2

REPORT INFORMATION
  Report Type: 
  Country: None (occurrence: None)
  Receive Date: 20100628
  Receipt Date: 20060216
  Transmission Date: 20101027
  Serious: Yes (Hospitalization, Other)
  Sender: FDA-Public Use
  Company Number: US-PFIZER INC-2006023328

PATIENT
  Sex: Male

DRUGS (7)
  1. SUTENT [Suspect]
     Indication: CHORDOMA
     Route: 048
     Dates: start: 20060201
  2. SPIRONOLACTONE [Interacting]
     Indication: OEDEMA
     Route: 065
  3. LASIX [Interacting]
     Indication: OEDEMA
     Route: 065
  4. ZAROXOLYN [Interacting]
     Indication: OEDEMA
     Route: 065
  5. RAPAMUNE [Interacting]
     Indication: ILL-DEFINED DISORDER
     Route: 065
  6. TRAMADOL HCL [Interacting]
     Indication: PAIN
     Route: 065
  7. HYDROCODONE [Concomitant]
     Indication: PAIN
     Route: 065

REACTIONS (4)
  - DEHYDRATION [None]
  - DIARRHOEA [None]
  - DRUG INTERACTION [None]
  - HEPATIC ENZYME INCREASED [None]
